FAERS Safety Report 4295114-3 (Version None)
Quarter: 2004Q1

REPORT INFORMATION
  Report Type: 
  Country: None (occurrence: None)
  Receive Date: 20040211
  Receipt Date: 20040129
  Transmission Date: 20041129
  Serious: Yes (Hospitalization)
  Sender: FDA-Public Use
  Company Number: NSADSS2002023380

PATIENT
  Age: 47 Year
  Sex: Female
  Weight: 72.5755 kg

DRUGS (7)
  1. REMICADE [Suspect]
     Indication: RHEUMATOID ARTHRITIS
     Dosage: 300 MG , INTRAVENOUS DRIP, 1 IN 1 AS NECESSARY , INTRAVENOUS DRIP
     Route: 041
     Dates: start: 20011205
  2. REMICADE [Suspect]
     Indication: RHEUMATOID ARTHRITIS
     Dosage: 300 MG , INTRAVENOUS DRIP, 1 IN 1 AS NECESSARY , INTRAVENOUS DRIP
     Route: 041
     Dates: start: 20020105
  3. REMICADE [Suspect]
     Indication: RHEUMATOID ARTHRITIS
     Dosage: 300 MG , INTRAVENOUS DRIP, 1 IN 1 AS NECESSARY , INTRAVENOUS DRIP
     Route: 041
     Dates: start: 20020130
  4. REMICADE [Suspect]
     Indication: RHEUMATOID ARTHRITIS
     Dosage: 300 MG , INTRAVENOUS DRIP, 1 IN 1 AS NECESSARY , INTRAVENOUS DRIP
     Route: 041
     Dates: start: 20020327
  5. REMICADE [Suspect]
     Indication: RHEUMATOID ARTHRITIS
     Dosage: 300 MG , INTRAVENOUS DRIP, 1 IN 1 AS NECESSARY , INTRAVENOUS DRIP
     Route: 041
     Dates: start: 20020702
  6. ARAVA [Concomitant]
  7. PREDNISONE [Concomitant]

REACTIONS (3)
  - ARTHRITIS BACTERIAL [None]
  - ARTHRITIS INFECTIVE [None]
  - STREPTOCOCCAL INFECTION [None]
